FAERS Safety Report 25274446 (Version 1)
Quarter: 2025Q2

REPORT INFORMATION
  Report Type: Spontaneous
  Country: US (occurrence: US)
  Receive Date: 20250506
  Receipt Date: 20250506
  Transmission Date: 20250716
  Serious: Yes (Hospitalization, Other)
  Sender: REGENERON
  Company Number: US-REGENERON PHARMACEUTICALS, INC.-2025-072407

PATIENT
  Sex: Female

DRUGS (3)
  1. EYLEA HD [Suspect]
     Active Substance: AFLIBERCEPT
     Indication: Neovascular age-related macular degeneration
     Dates: start: 202408, end: 202408
  2. EYLEA HD [Suspect]
     Active Substance: AFLIBERCEPT
     Dates: start: 202501, end: 202501
  3. EYLEA HD [Suspect]
     Active Substance: AFLIBERCEPT
     Dates: start: 20250417

REACTIONS (2)
  - Hypoxia [Unknown]
  - Encephalitis [Unknown]

NARRATIVE: CASE EVENT DATE: 20250101
